FAERS Safety Report 19716846 (Version 2)
Quarter: 2021Q3

REPORT INFORMATION
  Report Type: Spontaneous
  Country: CN (occurrence: CN)
  Receive Date: 20210818
  Receipt Date: 20210826
  Transmission Date: 20211014
  Serious: Yes (Death, Hospitalization)
  Sender: FDA-Public Use
  Company Number: CN-LUPIN PHARMACEUTICALS INC.-2021-14798

PATIENT
  Age: 69 Year
  Sex: Female

DRUGS (3)
  1. VORICONAZOLE. [Suspect]
     Active Substance: VORICONAZOLE
     Indication: PERITONITIS
  2. VORICONAZOLE. [Suspect]
     Active Substance: VORICONAZOLE
     Indication: CANDIDA INFECTION
  3. VORICONAZOLE. [Suspect]
     Active Substance: VORICONAZOLE
     Indication: FUNGAL PERITONITIS
     Dosage: 0.4 GRAM
     Route: 065

REACTIONS (1)
  - Therapy non-responder [Fatal]
